FAERS Safety Report 16741124 (Version 2)
Quarter: 2022Q3

REPORT INFORMATION
  Report Type: Spontaneous
  Country: CA (occurrence: CA)
  Receive Date: 20190826
  Receipt Date: 20220711
  Transmission Date: 20221027
  Serious: Yes (Death)
  Sender: FDA-Public Use
  Company Number: CA-PFIZER INC-2019362645

PATIENT
  Age: 73 Year
  Sex: Female
  Weight: 59 kg

DRUGS (5)
  1. GEMCITABINE HYDROCHLORIDE [Suspect]
     Active Substance: GEMCITABINE HYDROCHLORIDE
     Indication: Adjuvant therapy
     Dosage: 1540 MG Q1WEEK X 3WEEKS/4 FOR 6 CYCLES
     Route: 042
     Dates: start: 2016, end: 2016
  2. GEMCITABINE HYDROCHLORIDE [Suspect]
     Active Substance: GEMCITABINE HYDROCHLORIDE
     Indication: Pancreatic neoplasm
  3. HYDROMORPHONE [Concomitant]
     Active Substance: HYDROMORPHONE
     Dosage: 1 MG, EVERY 4 HRS (AS NEEDED)
     Route: 048
  4. LANSOPRAZOLE [Concomitant]
     Active Substance: LANSOPRAZOLE
     Dosage: 30 MG, DAILY (AS NEEDED)
     Route: 048
  5. SYNTHROID [Concomitant]
     Active Substance: LEVOTHYROXINE SODIUM
     Dosage: 0.175 MG, DAILY
     Route: 048

REACTIONS (10)
  - Acute kidney injury [Fatal]
  - Acute pulmonary oedema [Fatal]
  - Confusional state [Fatal]
  - Drug-induced liver injury [Fatal]
  - General physical health deterioration [Fatal]
  - Jaundice [Fatal]
  - Lung disorder [Fatal]
  - Oedema [Fatal]
  - Pruritus [Fatal]
  - Respiratory failure [Fatal]

NARRATIVE: CASE EVENT DATE: 20160101
